FAERS Safety Report 6854839-3 (Version None)
Quarter: 2010Q3

REPORT INFORMATION
  Report Type: 
  Country: None (occurrence: None)
  Receive Date: 20100717
  Receipt Date: 20080229
  Transmission Date: 20110219
  Serious: Yes (Other)
  Sender: FDA-Public Use
  Company Number: US-PFIZER INC-2008004373

PATIENT
  Age: 57 Year
  Sex: Female
  Weight: 74.4 kg

DRUGS (1)
  1. CHANTIX [Suspect]
     Indication: DEPRESSION

REACTIONS (3)
  - CONVERSION DISORDER [None]
  - DEPRESSION [None]
  - SUICIDAL IDEATION [None]
